FAERS Safety Report 15193825 (Version 1)
Quarter: 2018Q3

REPORT INFORMATION
  Report Type: Spontaneous
  Country: US (occurrence: US)
  Receive Date: 20180724
  Receipt Date: 20180724
  Transmission Date: 20181010
  Serious: No
  Sender: FDA-Public Use
  Company Number: None

PATIENT
  Age: 66 Year
  Sex: Female
  Weight: 81.65 kg

DRUGS (10)
  1. LEVOFLOXACIN. [Suspect]
     Active Substance: LEVOFLOXACIN
     Indication: POLYP
     Route: 048
     Dates: start: 20180628, end: 20180707
  2. LISINOPRIL. [Concomitant]
     Active Substance: LISINOPRIL
  3. PROBIOTICS [Concomitant]
     Active Substance: PROBIOTICS NOS
  4. VITAMIN C [Concomitant]
     Active Substance: ASCORBIC ACID
  5. VITAMIN D [Concomitant]
     Active Substance: CHOLECALCIFEROL
  6. LEVOTHYROXINE. [Concomitant]
     Active Substance: LEVOTHYROXINE
  7. LEVOFLOXACIN. [Suspect]
     Active Substance: LEVOFLOXACIN
     Indication: RHINORRHOEA
     Route: 048
     Dates: start: 20180628, end: 20180707
  8. XHANCE [Concomitant]
     Active Substance: FLUTICASONE PROPIONATE
  9. MULTIPLE VIT [Concomitant]
  10. FLUTICASON [Concomitant]
     Active Substance: FLUTICASONE

REACTIONS (4)
  - Plantar fasciitis [None]
  - Pain in extremity [None]
  - Feeling hot [None]
  - Muscle spasms [None]

NARRATIVE: CASE EVENT DATE: 20180707
